FAERS Safety Report 10542325 (Version 1)
Quarter: 2014Q4

REPORT INFORMATION
  Report Type: Spontaneous
  Country: US (occurrence: None)
  Receive Date: 20141010
  Receipt Date: 20141010
  Transmission Date: 20150529
  Serious: Yes (Hospitalization)
  Sender: FDA-Public Use
  Company Number: 163-POMAL-14055772

PATIENT
  Age: 81 Year
  Sex: Male
  Weight: 81.6 kg

DRUGS (12)
  1. POMALYST [Suspect]
     Active Substance: POMALIDOMIDE
     Indication: PLASMA CELL MYELOMA
     Dosage: 4 MG, 1 IN 1 D, PO
     Route: 048
     Dates: start: 20131206
  2. FOLIC ACID. [Concomitant]
     Active Substance: FOLIC ACID
  3. ACYCLOVIR (ACICLOVIR) [Concomitant]
  4. SULFAMETHOXAZOL W/TRIMETOPRIM (BACTRIM) [Concomitant]
  5. TYLENOL [Concomitant]
     Active Substance: ACETAMINOPHEN
  6. THIAMINE [Concomitant]
     Active Substance: THIAMINE
  7. COUMADIN [Concomitant]
     Active Substance: WARFARIN SODIUM
  8. OXYCODONE [Concomitant]
     Active Substance: OXYCODONE
  9. AMOXICILLIN TRIHYDRATE AND POTASSIUM CLAVULAN [Concomitant]
  10. AZITHROMYCIN [Concomitant]
     Active Substance: AZITHROMYCIN ANHYDROUS
  11. DEXAMETHASONE. [Concomitant]
     Active Substance: DEXAMETHASONE
  12. OMEPRAZOLE. [Concomitant]
     Active Substance: OMEPRAZOLE

REACTIONS (1)
  - Pneumonia [None]

NARRATIVE: CASE EVENT DATE: 20140529
